FAERS Safety Report 25970576 (Version 2)
Quarter: 2025Q4

REPORT INFORMATION
  Report Type: Report from Study
  Country: GT (occurrence: GT)
  Receive Date: 20251028
  Receipt Date: 20251208
  Transmission Date: 20260117
  Serious: Yes (Disabling, Other)
  Sender: NOVARTIS
  Company Number: GT-002147023-NVSC2025GT159804

PATIENT
  Sex: Female

DRUGS (3)
  1. HYDROCHLOROTHIAZIDE\VALSARTAN [Suspect]
     Active Substance: HYDROCHLOROTHIAZIDE\VALSARTAN
     Indication: Hypertension
     Dosage: 0.5 DOSAGE FORM (320 HYDROCHLOROTHIAZIDE/ VALSARTAN 25MG), QD
     Route: 048
     Dates: start: 2021
  2. CORDARONE [Concomitant]
     Active Substance: AMIODARONE HYDROCHLORIDE
     Indication: Arrhythmia
     Dosage: UNK
     Route: 065
  3. EDOXABAN TOSYLATE [Concomitant]
     Active Substance: EDOXABAN TOSYLATE
     Indication: Coagulopathy
     Dosage: UNK
     Route: 065

REACTIONS (7)
  - Deafness [Not Recovered/Not Resolved]
  - Helicobacter gastritis [Recovered/Resolved]
  - Flatulence [Unknown]
  - Discomfort [Recovered/Resolved]
  - Malaise [Unknown]
  - Memory impairment [Recovering/Resolving]
  - Wrong technique in product usage process [Unknown]

NARRATIVE: CASE EVENT DATE: 20210101
